FAERS Safety Report 8107654-7 (Version None)
Quarter: 2012Q1

REPORT INFORMATION
  Report Type: 
  Country: None (occurrence: None)
  Receive Date: 20120202
  Receipt Date: 20120126
  Transmission Date: 20120608
  Serious: Yes (Death, Hospitalization)
  Sender: FDA-Public Use
  Company Number: US-BRISTOL-MYERS SQUIBB COMPANY-16328882

PATIENT
  Age: 36 Year
  Sex: Male

DRUGS (9)
  1. LORTAB [Concomitant]
  2. FLUOXETINE [Concomitant]
     Route: 048
  3. PRILOSEC [Concomitant]
  4. PREDNISONE TAB [Concomitant]
     Route: 048
  5. MEGACE [Concomitant]
  6. YERVOY [Suspect]
     Indication: METASTATIC MALIGNANT MELANOMA
     Dosage: FORMUALATION-VIAL
     Route: 042
     Dates: start: 20111220, end: 20120111
  7. ONDANSETRON HCL [Concomitant]
  8. PREDNISONE TAB [Concomitant]
     Route: 048
  9. ASPIRIN [Concomitant]

REACTIONS (3)
  - ENTEROCOLITIS [None]
  - DEATH [None]
  - ANAEMIA [None]
